FAERS Safety Report 8073820-2 (Version None)
Quarter: 2012Q1

REPORT INFORMATION
  Report Type: 
  Country: None (occurrence: None)
  Receive Date: 20120126
  Receipt Date: 20120120
  Transmission Date: 20120608
  Serious: Yes (Death)
  Sender: FDA-Public Use
  Company Number: US-CELGENEUS-163-21880-12012197

PATIENT
  Sex: Male

DRUGS (4)
  1. RAMIPRIL [Concomitant]
     Dosage: 2.5 MILLIGRAM
     Route: 065
  2. DILTIAZEM CD [Concomitant]
     Dosage: 240 MILLIGRAM
     Route: 065
  3. FENOFIBRATE [Concomitant]
     Dosage: 160 MILLIGRAM
     Route: 065
  4. REVLIMID [Suspect]
     Dosage: 10 MILLIGRAM
     Route: 048
     Dates: start: 20111228

REACTIONS (1)
  - DEATH [None]
